FAERS Safety Report 13284637 (Version 2)
Quarter: 2017Q1

REPORT INFORMATION
  Report Type: Report from Study
  Country: US (occurrence: US)
  Receive Date: 20170301
  Receipt Date: 20170320
  Transmission Date: 20170428
  Serious: Yes (Other)
  Sender: FDA-Public Use
  Company Number: US-NAPPMUNDI-USA-2017-0136847

PATIENT
  Sex: Female

DRUGS (2)
  1. OXYCODONE HYDROCHLORIDE. [Suspect]
     Active Substance: OXYCODONE HYDROCHLORIDE
     Indication: PAIN
     Dosage: 40 MG, Q12H
     Route: 048
  2. OXYCODONE HYDROCHLORIDE. [Suspect]
     Active Substance: OXYCODONE HYDROCHLORIDE
     Dosage: 40 UNK, Q8H
     Route: 048

REACTIONS (5)
  - Oropharyngeal pain [Unknown]
  - Off label use [Unknown]
  - Fall [Unknown]
  - Meniscus injury [Unknown]
  - Ear pain [Unknown]

NARRATIVE: CASE EVENT DATE: 2014
